FAERS Safety Report 8844901 (Version 1)
Quarter: 2012Q4

REPORT INFORMATION
  Report Type: Spontaneous
  Country: US (occurrence: None)
  Receive Date: 20121002
  Receipt Date: 20121002
  Transmission Date: 20130627
  Serious: Yes (Other)
  Sender: FDA-Public Use
  Company Number: RB-41200-2012

PATIENT
  Age: 34 Year
  Sex: Female

DRUGS (2)
  1. SUBOXONE [Suspect]
     Indication: PRODUCT USED FOR UNKNOWN INDICATION
  2. SUBOXONE [Suspect]
     Indication: PRODUCT USED FOR UNKNOWN INDICATION

REACTIONS (17)
  - Joint injury [None]
  - Wrong technique in drug usage process [None]
  - Intentional drug misuse [None]
  - Drug ineffective [None]
  - Substance abuse [None]
  - Arthropathy [None]
  - Condition aggravated [None]
  - Apathy [None]
  - Pain [None]
  - Drug ineffective for unapproved indication [None]
  - Emotional disorder [None]
  - Mental disorder [None]
  - Depression [None]
  - Tremor [None]
  - Fall [None]
  - Therapeutic response unexpected [None]
  - Limb injury [None]
